FAERS Safety Report 14415361 (Version 3)
Quarter: 2018Q1

REPORT INFORMATION
  Report Type: Spontaneous
  Country: US (occurrence: US)
  Receive Date: 20180121
  Receipt Date: 20180312
  Transmission Date: 20180509
  Serious: Yes (Hospitalization)
  Sender: FDA-Public Use
  Company Number: US-009507513-1801USA007233

PATIENT
  Age: 55 Year
  Sex: Female
  Weight: 119.6 kg

DRUGS (2)
  1. KEYTRUDA [Suspect]
     Active Substance: PEMBROLIZUMAB
     Indication: THYROID CANCER
     Dosage: 200 MG, DAY 1, EVERY 21 DAYS
     Route: 042
     Dates: start: 20171030, end: 20171208
  2. DOCETAXEL. [Suspect]
     Active Substance: DOCETAXEL
     Indication: THYROID CANCER
     Dosage: 36, DAY 1, EVERY 21 DAYS
     Route: 042
     Dates: start: 20171030, end: 20171208

REACTIONS (3)
  - Anaemia [Unknown]
  - Asthenia [Unknown]
  - Hypotension [Unknown]

NARRATIVE: CASE EVENT DATE: 20171221
